FAERS Safety Report 10573609 (Version 1)
Quarter: 2014Q4

REPORT INFORMATION
  Report Type: Spontaneous
  Country: US (occurrence: None)
  Receive Date: 20141030
  Receipt Date: 20141030
  Transmission Date: 20150529
  Serious: Yes (Other)
  Sender: FDA-Public Use
  Company Number: PHEH2014US016025

PATIENT
  Age: 31 Year
  Sex: Male
  Weight: 314 kg

DRUGS (6)
  1. RECLAST [Suspect]
     Active Substance: ZOLEDRONIC ACID
     Indication: OSTEOPOROSIS
     Route: 042
     Dates: start: 20140808
  2. VITAMIN D (ERGOCALCIFEROL) [Concomitant]
     Active Substance: ERGOCALCIFEROL
  3. IRON (IRON) [Concomitant]
     Active Substance: IRON
  4. CALCIUM (CALCIUM) [Concomitant]
     Active Substance: CALCIUM
  5. PREDNISOLONE (PREDNISOLONE) [Concomitant]
     Active Substance: PREDNISOLONE
  6. METHOTREXATE (METHOTREXATE) [Concomitant]
     Active Substance: METHOTREXATE

REACTIONS (5)
  - Chills [None]
  - Back pain [None]
  - Pyrexia [None]
  - Tachycardia [None]
  - Neck pain [None]

NARRATIVE: CASE EVENT DATE: 20140808
